FAERS Safety Report 6492712-3 (Version None)
Quarter: 2009Q4

REPORT INFORMATION
  Report Type: 
  Country: None (occurrence: None)
  Receive Date: 20091214
  Receipt Date: 20091204
  Transmission Date: 20100525
  Serious: Yes (Other)
  Sender: FDA-Public Use
  Company Number: FR-SANOFI-AVENTIS-200912669FR

PATIENT
  Age: 57 Year
  Sex: Male

DRUGS (11)
  1. INSULIN GLARGINE [Suspect]
     Dosage: DOSE UNIT: 100 IU/ML
     Route: 058
     Dates: start: 20050201
  2. LEXOMIL [Concomitant]
     Indication: DRUG USE FOR UNKNOWN INDICATION
     Dosage: DOSE AS USED: 3-0-4.5 MGDOSE UNIT: 6 MG
     Route: 048
  3. LYTOS [Concomitant]
     Indication: DRUG USE FOR UNKNOWN INDICATION
     Route: 048
     Dates: end: 20090101
  4. NOVORAPID [Concomitant]
     Indication: DRUG USE FOR UNKNOWN INDICATION
     Dosage: DOSE UNIT: 100 IU
     Route: 058
  5. METFORMIN HYDROCHLORIDE [Concomitant]
     Indication: DRUG USE FOR UNKNOWN INDICATION
     Dosage: DOSE UNIT: 1000 MG
     Route: 048
  6. IMOVANE [Concomitant]
     Indication: DRUG USE FOR UNKNOWN INDICATION
     Dosage: DOSE UNIT: 7.5 MG
     Route: 048
  7. OLMESARTAN [Concomitant]
     Indication: DRUG USE FOR UNKNOWN INDICATION
     Dosage: DOSE UNIT: 20 MG
     Route: 048
  8. NOVOMIX [Concomitant]
     Indication: DRUG USE FOR UNKNOWN INDICATION
     Dosage: DOSE UNIT: 100 IU
     Route: 058
  9. EFFERALGAN [Concomitant]
     Indication: DRUG USE FOR UNKNOWN INDICATION
     Route: 048
  10. LYRICA [Concomitant]
     Indication: DIABETIC NEUROPATHY
     Route: 048
  11. OMEPRAZOLE [Concomitant]
     Indication: DRUG USE FOR UNKNOWN INDICATION
     Dosage: DOSE UNIT: 20 MG
     Route: 048

REACTIONS (1)
  - MULTIPLE MYELOMA [None]
